FAERS Safety Report 8975159 (Version 3)
Quarter: 2013Q2

REPORT INFORMATION
  Report Type: Spontaneous
  Country: GB (occurrence: GB)
  Receive Date: 20121220
  Receipt Date: 20130513
  Transmission Date: 20140414
  Serious: Yes (Death)
  Sender: FDA-Public Use
  Company Number: PHFR2012GB006527

PATIENT
  Age: 30 Year
  Sex: Male

DRUGS (3)
  1. CLOZARIL [Suspect]
     Indication: SCHIZOPHRENIA
     Dosage: UNK UKN, UNK
     Dates: start: 20111202
  2. CLOZARIL [Suspect]
     Dosage: 300 MG
     Route: 048
  3. METHADONE [Suspect]
     Dosage: UNK

REACTIONS (1)
  - Overdose [Fatal]
